FAERS Safety Report 8968260 (Version 1)
Quarter: 2012Q4

REPORT INFORMATION
  Report Type: 
  Country: US (occurrence: US)
  Receive Date: 20121218
  Receipt Date: 20121218
  Transmission Date: 20130627
  Serious: Yes (Other)
  Sender: FDA-Public Use
  Company Number: US-PFIZER INC-2012268360

PATIENT
  Sex: Female

DRUGS (2)
  1. TIKOSYN [Suspect]
     Dosage: Unknown dose
     Route: 048
  2. TIKOSYN [Suspect]
     Dosage: 250 ug, 2x/day
     Route: 048

REACTIONS (1)
  - Obstruction gastric [Unknown]
